FAERS Safety Report 9664437 (Version 1)
Quarter: 2013Q4

REPORT INFORMATION
  Report Type: Spontaneous
  Country: US (occurrence: None)
  Receive Date: 20131030
  Receipt Date: 20131030
  Transmission Date: 20140711
  Serious: No
  Sender: FDA-Public Use
  Company Number: None

PATIENT
  Age: 51 Year
  Sex: Female

DRUGS (2)
  1. INCIVEK [Suspect]
     Indication: HEPATITIS C
     Route: 048
     Dates: start: 20130823
  2. RIBAPAK [Suspect]
     Indication: HEPATITIS C
     Route: 048
     Dates: start: 20130823

REACTIONS (2)
  - Fatigue [None]
  - Myalgia [None]
